FAERS Safety Report 21736941 (Version 2)
Quarter: 2022Q4

REPORT INFORMATION
  Report Type: Other
  Country: SG (occurrence: None)
  Receive Date: 20221216
  Receipt Date: 20221226
  Transmission Date: 20230113
  Serious: Yes (Death)
  Sender: FDA-Public Use
  Company Number: SG-ROCHE-3186366

PATIENT
  Age: 51 Year
  Sex: Male
  Weight: 73.5 kg

DRUGS (2)
  1. GLOFITAMAB [Suspect]
     Active Substance: GLOFITAMAB
     Indication: Diffuse large B-cell lymphoma refractory
     Dosage: ON 18/OCT/2022, MOST RECENT DOSE OF GLOFITAMAB WAS ADMINISTERED.
     Route: 042
     Dates: start: 20221011, end: 20221118
  2. OBINUTUZUMAB [Suspect]
     Active Substance: OBINUTUZUMAB
     Indication: Diffuse large B-cell lymphoma refractory
     Route: 042
     Dates: start: 20221011

REACTIONS (2)
  - Gastrointestinal perforation [Fatal]
  - Drug ineffective [Unknown]

NARRATIVE: CASE EVENT DATE: 20221206
